FAERS Safety Report 5152962-5 (Version None)
Quarter: 2006Q4

REPORT INFORMATION
  Report Type: 
  Country: None (occurrence: None)
  Receive Date: 20061117
  Receipt Date: 20061103
  Transmission Date: 20070319
  Serious: Yes (Hospitalization)
  Sender: FDA-Public Use
  Company Number: FR-ELI_LILLY_AND_COMPANY-FR200611000743

PATIENT
  Age: 81 Year
  Sex: Female

DRUGS (11)
  1. FORTEO [Suspect]
     Indication: OSTEOPOROSIS
     Dosage: 20 UG, DAILY (1/D)
     Route: 058
     Dates: start: 20051005, end: 20061024
  2. CORDARONE [Concomitant]
     Dosage: 2 D/F, WEEKLY (1/W)
  3. IXEL [Concomitant]
     Indication: DEPRESSION
     Dosage: 2 D/F, DAILY (1/D)
  4. URBANYL [Concomitant]
     Dosage: 2 D/F, DAILY (1/D)
  5. DEROXAT [Concomitant]
     Indication: DEPRESSION
     Dosage: 0.5 D/F, OTHER
  6. LAMICTAL [Concomitant]
     Dosage: 1 D/F, DAILY (1/D)
  7. TRIATEC [Concomitant]
     Dosage: 1 D/F, UNK
  8. SECTRAL [Concomitant]
     Dosage: 0.5 D/F, DAILY (1/D)
  9. PRAVASTATIN [Concomitant]
     Indication: HYPERCHOLESTEROLAEMIA
     Dosage: 1 D/F, DAILY (1/D)
  10. SPECIAFOLDINE [Concomitant]
     Dosage: 1 D/F, DAILY (1/D)
  11. CACIT D3 [Concomitant]
     Indication: OSTEOPOROSIS
     Dosage: 1 D/F, DAILY (1/D)

REACTIONS (3)
  - APHASIA [None]
  - LOSS OF CONSCIOUSNESS [None]
  - MALAISE [None]
